FAERS Safety Report 6435200-2 (Version None)
Quarter: 2009Q4

REPORT INFORMATION
  Report Type: 
  Country: None (occurrence: None)
  Receive Date: 20091106
  Receipt Date: 20091029
  Transmission Date: 20100525
  Serious: Yes (Death, Other)
  Sender: FDA-Public Use
  Company Number: 2007-02918

PATIENT
  Age: 69 Year
  Sex: Female
  Weight: 68 kg

DRUGS (20)
  1. VELCADE [Suspect]
     Indication: MULTIPLE MYELOMA
     Dosage: 2.30 MG,INTRAVENOUS
     Route: 042
     Dates: start: 20070525, end: 20070604
  2. CARVEDILOL [Suspect]
     Indication: ANGINA PECTORIS
     Dosage: 2.5 MG, ORAL
     Route: 048
  3. VERAPAMIL HYDROCHLORIDE [Suspect]
     Indication: ANGINA PECTORIS
     Dosage: 40.00 MG,ORAL
     Route: 048
  4. SIGMART(NICORANDIL) [Suspect]
     Indication: CARDIAC FAILURE
     Dosage: INTRAVENOUS
     Route: 042
     Dates: end: 20070529
  5. DEXAMETHASONE [Concomitant]
  6. OXYCONTIN [Concomitant]
  7. MORPHINE [Concomitant]
  8. FENTANYL-100 [Concomitant]
  9. URSODIOL [Concomitant]
  10. MAGNESIUM OXIDE (MAGNESIUM OXIDE) [Concomitant]
  11. PANTOSIN (PANTETHINE) [Concomitant]
  12. LASIX [Concomitant]
  13. ASPIRIN [Concomitant]
  14. RABEPRAZOLE SODIUM [Concomitant]
  15. ALOSENN (TARAXACUM OFFICIALE, ACHILLEA, SENNA LEAF, RUBIA ROOT TINCTUR [Concomitant]
  16. SULFAMETHOXAZOLE AND TRIMETHOPRIM [Concomitant]
  17. NAUZELIN (DOMPERIDONE) [Concomitant]
  18. ZYPREXA [Concomitant]
  19. ALDACTONE [Concomitant]
  20. RED BLOOD CELLS [Concomitant]

REACTIONS (9)
  - ANXIETY [None]
  - BUNDLE BRANCH BLOCK [None]
  - ELECTROCARDIOGRAM QRS COMPLEX PROLONGED [None]
  - HYPOAESTHESIA [None]
  - HYPOTENSION [None]
  - IRRITABILITY [None]
  - MALIGNANT NEOPLASM PROGRESSION [None]
  - MULTIPLE MYELOMA [None]
  - PLATELET COUNT DECREASED [None]
